FAERS Safety Report 9691373 (Version 3)
Quarter: 2013Q4

REPORT INFORMATION
  Report Type: Report from Study
  Country: US (occurrence: US)
  Receive Date: 20131115
  Receipt Date: 20131211
  Transmission Date: 20140711
  Serious: Yes (Other)
  Sender: FDA-Public Use
  Company Number: US-MYLANLABS-2013S1025248

PATIENT
  Age: 19 Year
  Sex: Female
  Weight: 76.6 kg

DRUGS (9)
  1. AMNESTEEM CAPSULES [Suspect]
     Indication: NEUROBLASTOMA
     Route: 048
     Dates: start: 20130829, end: 20131007
  2. AMNESTEEM CAPSULES [Suspect]
     Indication: OFF LABEL USE
     Route: 048
     Dates: start: 20130829, end: 20131007
  3. AMNESTEEM CAPSULES [Suspect]
     Indication: NEUROBLASTOMA
     Route: 048
     Dates: start: 20130829, end: 20131007
  4. AMNESTEEM CAPSULES [Suspect]
     Indication: OFF LABEL USE
     Route: 048
     Dates: start: 20130829, end: 20131007
  5. AMNESTEEM CAPSULES [Suspect]
     Indication: NEUROBLASTOMA
     Route: 048
     Dates: start: 20130829, end: 20131007
  6. AMNESTEEM CAPSULES [Suspect]
     Indication: OFF LABEL USE
     Route: 048
     Dates: start: 20130829, end: 20131007
  7. LUPRON [Concomitant]
     Route: 030
  8. KEFLEX [Concomitant]
     Route: 048
     Dates: start: 20130929, end: 20131005
  9. HYPROMELLOSE [Concomitant]
     Dosage: 2 DROPS EVERY 2 HOURS AS NEEDED
     Route: 047

REACTIONS (15)
  - Headache [Recovered/Resolved]
  - Mental status changes [Recovered/Resolved]
  - Eye pain [Recovered/Resolved]
  - Pain [Recovered/Resolved]
  - Pain in extremity [Recovered/Resolved]
  - Arthralgia [Recovered/Resolved]
  - Back pain [Recovered/Resolved]
  - Pyrexia [Recovered/Resolved]
  - Vision blurred [Recovered/Resolved]
  - Visual impairment [Recovered/Resolved]
  - Unevaluable event [Recovered/Resolved]
  - Nausea [Recovered/Resolved]
  - Decreased appetite [Recovered/Resolved]
  - Crying [Recovered/Resolved]
  - Adverse drug reaction [Recovered/Resolved]
